FAERS Safety Report 6825989-2 (Version None)
Quarter: 2010Q3

REPORT INFORMATION
  Report Type: 
  Country: None (occurrence: None)
  Receive Date: 20100709
  Receipt Date: 20100630
  Transmission Date: 20110219
  Serious: Yes (Hospitalization)
  Sender: FDA-Public Use
  Company Number: US-JNJFOC-20100700738

PATIENT
  Sex: Female
  Weight: 108.86 kg

DRUGS (8)
  1. DURAGESIC-100 [Suspect]
     Indication: CHONDROMALACIA
     Route: 062
  2. DURAGESIC-100 [Suspect]
     Dosage: (100+25)UG/HR
     Route: 062
  3. DURAGESIC-100 [Suspect]
     Dosage: (100+75)UG/HR
     Route: 062
  4. DURAGESIC-100 [Suspect]
     Route: 062
  5. DURAGESIC-100 [Suspect]
     Dosage: (100+25) UG/HR
     Route: 062
  6. PREDNISONE [Concomitant]
     Indication: SYSTEMIC LUPUS ERYTHEMATOSUS
     Route: 048
  7. ARIXTRA [Concomitant]
     Indication: ANTICOAGULANT THERAPY
     Route: 058
  8. LUVOX [Concomitant]
     Indication: DEPRESSION
     Route: 048

REACTIONS (4)
  - ARTHRALGIA [None]
  - HEADACHE [None]
  - MULTIPLE FRACTURES [None]
  - WRONG TECHNIQUE IN DRUG USAGE PROCESS [None]
